FAERS Safety Report 25691268 (Version 1)
Quarter: 2025Q3

REPORT INFORMATION
  Report Type: Spontaneous
  Country: US (occurrence: US)
  Receive Date: 20250818
  Receipt Date: 20250818
  Transmission Date: 20251020
  Serious: No
  Sender: PFIZER
  Company Number: US-PFIZER INC-202500163356

PATIENT
  Age: 64 Year
  Sex: Female
  Weight: 81.1 kg

DRUGS (2)
  1. PAXLOVID [Interacting]
     Active Substance: NIRMATRELVIR\RITONAVIR
     Indication: COVID-19 treatment
     Dosage: 3 DF, 1X/DAY (NIRMATRELVIR 300 MG)/(RITONAVIR 100 MG)
     Route: 048
     Dates: start: 20250813, end: 20250813
  2. TACROLIMUS [Interacting]
     Active Substance: TACROLIMUS
     Indication: COVID-19

REACTIONS (1)
  - Drug interaction [Unknown]

NARRATIVE: CASE EVENT DATE: 20250813
